FAERS Safety Report 6315250-7 (Version None)
Quarter: 2009Q3

REPORT INFORMATION
  Report Type: 
  Country: None (occurrence: None)
  Receive Date: 20090819
  Receipt Date: 20090811
  Transmission Date: 20100115
  Serious: Yes (Hospitalization)
  Sender: FDA-Public Use
  Company Number: PHHY2009MX31911

PATIENT
  Sex: Female

DRUGS (7)
  1. EXFORGE [Suspect]
     Indication: HYPERTENSION
     Dosage: 1 TABLET (160/5 MG) PER DAY
     Dates: start: 20060401
  2. EXFORGE [Suspect]
     Dosage: HALF TABLET (160/5 MG) PER DAY
     Dates: start: 20090712, end: 20090730
  3. EXFORGE [Suspect]
     Dosage: 1 TABLET (160/5 MG) PER DAY
     Dates: start: 20090730
  4. FUROSEMIDE [Concomitant]
  5. AMARYL [Concomitant]
  6. ZYLOPRIM [Concomitant]
  7. FOLIC ACID [Concomitant]

REACTIONS (3)
  - CATARACT [None]
  - CATARACT OPERATION [None]
  - HYPERTENSION [None]
